FAERS Safety Report 6988054-X (Version None)
Quarter: 2010Q3

REPORT INFORMATION
  Report Type: 
  Country: None (occurrence: None)
  Receive Date: 20100916
  Receipt Date: 20100913
  Transmission Date: 20110219
  Serious: Yes (Death)
  Sender: FDA-Public Use
  Company Number: A0874089A

PATIENT
  Age: 91 Year
  Sex: Male
  Weight: 68.6 kg

DRUGS (1)
  1. VOTRIENT [Suspect]
     Dates: start: 20100108, end: 20100312

REACTIONS (4)
  - DEATH [None]
  - DISEASE PROGRESSION [None]
  - DRUG INEFFECTIVE [None]
  - RENAL CELL CARCINOMA [None]
